FAERS Safety Report 19604469 (Version 3)
Quarter: 2021Q3

REPORT INFORMATION
  Report Type: Spontaneous
  Country: CN (occurrence: CN)
  Receive Date: 20210723
  Receipt Date: 20210730
  Transmission Date: 20211014
  Serious: Yes (Hospitalization)
  Sender: FDA-Public Use
  Company Number: CN-GLAXOSMITHKLINE-CN2021APC157600

PATIENT
  Age: 65 Year
  Sex: Male

DRUGS (5)
  1. SERETIDE [Suspect]
     Active Substance: FLUTICASONE PROPIONATE\SALMETEROL XINAFOATE
     Indication: ASTHMA
     Dosage: UNK, BID
     Route: 055
     Dates: start: 202104
  2. PIPERACILLIN + TAZOBACTAM SODIUM [Suspect]
     Active Substance: PIPERACILLIN SODIUM\TAZOBACTAM SODIUM
     Indication: INFECTION
     Dosage: UNK
  3. METHYLPREDNISOLONE. [Concomitant]
     Active Substance: METHYLPREDNISOLONE
     Indication: INFLAMMATION
     Dosage: UNK
  4. OMALIZUMAB. [Suspect]
     Active Substance: OMALIZUMAB
     Indication: DRUG THERAPY
     Dosage: 300 MG, QD
  5. SYMBICORT [Concomitant]
     Active Substance: BUDESONIDE\FORMOTEROL FUMARATE DIHYDRATE
     Indication: ASTHMA
     Dosage: 320 UG, BID
     Dates: start: 202102

REACTIONS (9)
  - Mouth ulceration [Unknown]
  - Asthma [Unknown]
  - Productive cough [Unknown]
  - Weight decreased [Unknown]
  - Dyspnoea [Unknown]
  - Oral candidiasis [Not Recovered/Not Resolved]
  - Cough [Unknown]
  - Nocturnal dyspnoea [Unknown]
  - Pharyngeal ulceration [Not Recovered/Not Resolved]

NARRATIVE: CASE EVENT DATE: 202105
